FAERS Safety Report 8689312 (Version 2)
Quarter: 2013Q1

REPORT INFORMATION
  Report Type: Spontaneous
  Country: US (occurrence: US)
  Receive Date: 20120727
  Receipt Date: 20130221
  Transmission Date: 20140127
  Serious: No
  Sender: FDA-Public Use
  Company Number: US-ASTRAZENECA-2011SE77094

PATIENT
  Age: 59 Year
  Sex: Male

DRUGS (1)
  1. SEROQUEL XR [Suspect]
     Route: 048

REACTIONS (4)
  - Feeling abnormal [Unknown]
  - Insomnia [Unknown]
  - Drug dose omission [Unknown]
  - Off label use [Unknown]
